FAERS Safety Report 17063352 (Version 2)
Quarter: 2019Q4

REPORT INFORMATION
  Report Type: Spontaneous
  Country: VN (occurrence: VN)
  Receive Date: 20191122
  Receipt Date: 20191203
  Transmission Date: 20200122
  Serious: Yes (Hospitalization)
  Sender: FDA-Public Use
  Company Number: VN-JNJFOC-20191131137

PATIENT
  Age: 2 Year
  Sex: Male

DRUGS (1)
  1. PARACETAMOL [Suspect]
     Active Substance: ACETAMINOPHEN
     Indication: PYREXIA
     Dosage: EACH DOSE THAT THE CHILD TOOK OF THE MEDICINE WAS GIVEN 500 MILLIGRAMS FOR FOUR DAYS.
     Route: 065

REACTIONS (2)
  - Hepatic failure [Unknown]
  - Overdose [Unknown]
